FAERS Safety Report 8431565-0 (Version None)
Quarter: 2012Q2

REPORT INFORMATION
  Report Type: 
  Country: None (occurrence: None)
  Receive Date: 20120607
  Receipt Date: 20120607
  Transmission Date: 20120825
  Serious: No
  Sender: FDA-Public Use
  Company Number: None

PATIENT
  Sex: Male
  Weight: 12.7007 kg

DRUGS (2)
  1. AMOXICILLIN [Suspect]
     Indication: EAR INFECTION
     Dosage: 1 1/2 TSP 2/ DAY MOUTH
     Dates: start: 20120411
  2. AMOXICILLIN [Suspect]
     Indication: PHARYNGITIS STREPTOCOCCAL
     Dosage: 1 1/2 TSP 2/ DAY MOUTH
     Dates: start: 20120411

REACTIONS (4)
  - URTICARIA [None]
  - TYPE IV HYPERSENSITIVITY REACTION [None]
  - PRURITUS [None]
  - RASH [None]
